FAERS Safety Report 5044531-2 (Version None)
Quarter: 2006Q3

REPORT INFORMATION
  Report Type: 
  Country: None (occurrence: None)
  Receive Date: 20060706
  Receipt Date: 20060629
  Transmission Date: 20061208
  Serious: Yes (Death, Hospitalization)
  Sender: FDA-Public Use
  Company Number: US-JNJFOC-20060401378

PATIENT
  Sex: Female
  Weight: 72.5 kg

DRUGS (8)
  1. YONDELIS [Suspect]
     Indication: OVARIAN CANCER
     Route: 042
  2. DOXIL [Suspect]
     Indication: OVARIAN CANCER
     Route: 042
  3. OXYCODONE HCL [Concomitant]
     Route: 048
  4. SYNTHROID [Concomitant]
     Route: 048
  5. DILAUDID [Concomitant]
     Route: 048
  6. COMPAZINE [Concomitant]
  7. ATIVAN [Concomitant]
  8. ZOFRAN [Concomitant]

REACTIONS (6)
  - INTESTINAL OBSTRUCTION [None]
  - OVARIAN CANCER [None]
  - PLEURAL EFFUSION [None]
  - PULMONARY EMBOLISM [None]
  - RESPIRATORY FAILURE [None]
  - VOMITING [None]
